FAERS Safety Report 9153649 (Version 1)
Quarter: 2013Q1

REPORT INFORMATION
  Report Type: Report from Study
  Country: CA (occurrence: CA)
  Receive Date: 20130311
  Receipt Date: 20130311
  Transmission Date: 20140127
  Serious: Yes (Hospitalization)
  Sender: FDA-Public Use
  Company Number: PHHY2011CA76667

PATIENT
  Age: 80 None
  Sex: Female
  Weight: 70 kg

DRUGS (9)
  1. ACLASTA/ZOLEDRONATE [Suspect]
     Indication: OSTEOPOROSIS
     Dosage: ANNUAL INFUSION
     Route: 042
     Dates: start: 20090311
  2. ACLASTA/ZOLEDRONATE [Suspect]
     Dosage: ANNUAL INFUSION
     Route: 042
     Dates: start: 20100331
  3. ACLASTA/ZOLEDRONATE [Suspect]
     Dosage: ANNUAL INFUSION
     Route: 042
     Dates: start: 20110330
  4. ACLASTA/ZOLEDRONATE [Suspect]
     Dosage: ANNUAL INFUSION
     Route: 042
     Dates: start: 20120531
  5. CLONAZEPAM [Concomitant]
     Dosage: UNK UKN, UNK
  6. CELEXA [Concomitant]
     Dosage: UNK UKN, UNK
  7. CALCIUM [Concomitant]
     Dosage: 500 MG/DAY
     Dates: start: 200711
  8. VITAMIN B12 [Concomitant]
     Dosage: UNK UKN, UNK
  9. VITAMIN D [Concomitant]
     Dosage: 2000 IU/DAY
     Dates: start: 20110824

REACTIONS (7)
  - Myocardial infarction [Unknown]
  - Hypertension [Unknown]
  - Fall [Recovered/Resolved]
  - Head injury [Recovered/Resolved]
  - Wrist fracture [Recovered/Resolved]
  - Rib fracture [Recovered/Resolved]
  - Facial bones fracture [Recovered/Resolved]
